FAERS Safety Report 23680942 (Version 1)
Quarter: 2024Q1

REPORT INFORMATION
  Report Type: Spontaneous
  Country: GB (occurrence: GB)
  Receive Date: 20240328
  Receipt Date: 20240328
  Transmission Date: 20240410
  Serious: Yes (Other)
  Sender: FDA-Public Use
  Company Number: None

PATIENT
  Age: 17 Year
  Sex: Male
  Weight: 60 kg

DRUGS (3)
  1. DUPILUMAB [Suspect]
     Active Substance: DUPILUMAB
     Indication: Adverse drug reaction
     Dosage: UNK
     Dates: start: 20240129
  2. DUPILUMAB [Suspect]
     Active Substance: DUPILUMAB
     Indication: Eczema
  3. DUPILUMAB [Suspect]
     Active Substance: DUPILUMAB
     Indication: Topical steroid withdrawal reaction

REACTIONS (1)
  - Eye infection intraocular [Recovering/Resolving]

NARRATIVE: CASE EVENT DATE: 20240311
